FAERS Safety Report 7400765-0 (Version None)
Quarter: 2011Q2

REPORT INFORMATION
  Report Type: 
  Country: None (occurrence: None)
  Receive Date: 20110407
  Receipt Date: 20110321
  Transmission Date: 20111010
  Serious: Yes (Hospitalization)
  Sender: FDA-Public Use
  Company Number: A0921711A

PATIENT
  Age: 57 Year
  Sex: Female
  Weight: 68.6 kg

DRUGS (3)
  1. LAPATINIB [Suspect]
     Indication: BLADDER CANCER
     Dosage: 750MG PER DAY
     Route: 048
     Dates: start: 20110221
  2. GEMCITABINE [Suspect]
     Indication: BLADDER CANCER
     Dosage: 1000MGM2 CYCLIC
     Route: 042
  3. CISPLATIN [Suspect]
     Indication: BLADDER CANCER
     Dosage: 70MGM2 EVERY 3 WEEKS
     Route: 042

REACTIONS (4)
  - RENAL FAILURE ACUTE [None]
  - BLOOD CREATININE INCREASED [None]
  - DEHYDRATION [None]
  - DIARRHOEA [None]
